FAERS Safety Report 7779464-1 (Version None)
Quarter: 2011Q3

REPORT INFORMATION
  Report Type: 
  Country: None (occurrence: None)
  Receive Date: 20110927
  Receipt Date: 20110920
  Transmission Date: 20111222
  Serious: No
  Sender: FDA-Public Use
  Company Number: US-BIOGENIDEC-2011BI036078

PATIENT
  Age: 46 Year
  Sex: Female

DRUGS (1)
  1. TYSABRI [Suspect]
     Indication: MULTIPLE SCLEROSIS
     Route: 042
     Dates: start: 20110510

REACTIONS (6)
  - COUGH [None]
  - MUSCULAR WEAKNESS [None]
  - STRESS [None]
  - FATIGUE [None]
  - DRUG INEFFECTIVE [None]
  - BACK PAIN [None]
